FAERS Safety Report 12987536 (Version 1)
Quarter: 2016Q4

REPORT INFORMATION
  Report Type: Spontaneous
  Country: US (occurrence: US)
  Receive Date: 20161130
  Receipt Date: 20161130
  Transmission Date: 20170207
  Serious: Yes (Life-Threatening, Hospitalization, Disabling)
  Sender: FDA-Public Use
  Company Number: None

PATIENT
  Age: 66 Year
  Sex: Female
  Weight: 85.73 kg

DRUGS (7)
  1. BAYER LOW-DOSE ASPIRIN [Concomitant]
  2. LANTUS INSULIN GARGINE INJECTION [Concomitant]
  3. LOSARTIN POTASSIUM 100 MG UNKNOWN [Concomitant]
     Active Substance: LOSARTAN POTASSIUM
  4. CENTRUM SILVER MULTI-VITAMIN [Concomitant]
  5. PREVASTATIN SODIUM [Concomitant]
     Active Substance: PRAVASTATIN SODIUM
  6. HUMALOG KWIKPEN INSULIN LISPRO INJECTION [Concomitant]
  7. EFFIENT [Suspect]
     Active Substance: PRASUGREL HYDROCHLORIDE
     Indication: THROMBOSIS PROPHYLAXIS
     Dosage: ?          QUANTITY:I TAIL/FM;?
     Route: 048
     Dates: start: 20150112, end: 20150527

REACTIONS (3)
  - Internal haemorrhage [None]
  - Intestinal ulcer [None]
  - Myocardial infarction [None]

NARRATIVE: CASE EVENT DATE: 20150527
